FAERS Safety Report 11069863 (Version 1)
Quarter: 2015Q2

REPORT INFORMATION
  Report Type: Spontaneous
  Country: US (occurrence: US)
  Receive Date: 20150427
  Receipt Date: 20150427
  Transmission Date: 20150821
  Serious: No
  Sender: FDA-Public Use
  Company Number: US-MALLINCKRODT-T201403544

PATIENT
  Age: 57 Year
  Sex: Female
  Weight: 47.17 kg

DRUGS (3)
  1. ATIVAN [Concomitant]
     Active Substance: LORAZEPAM
     Dosage: UNK
  2. HYDROCODONE/ACETAMINOPHEN [Suspect]
     Active Substance: ACETAMINOPHEN\HYDROCODONE
     Indication: SYSTEMIC LUPUS ERYTHEMATOSUS
     Dosage: 5/325 MG, QID
     Route: 048
     Dates: start: 201408, end: 201409
  3. PROPAFENONE. [Concomitant]
     Active Substance: PROPAFENONE
     Indication: TACHYCARDIA
     Dosage: UNK

REACTIONS (3)
  - Restless legs syndrome [Recovered/Resolved]
  - Drug effect decreased [Recovered/Resolved]
  - Tachycardia [Recovered/Resolved]

NARRATIVE: CASE EVENT DATE: 201408
